FAERS Safety Report 16190676 (Version 1)
Quarter: 2019Q2

REPORT INFORMATION
  Report Type: Spontaneous
  Country: FR (occurrence: FR)
  Receive Date: 20190412
  Receipt Date: 20190412
  Transmission Date: 20190711
  Serious: Yes (Hospitalization)
  Sender: FDA-Public Use
  Company Number: FR-MYLANLABS-2019M1034930

PATIENT
  Age: 76 Year
  Sex: Male
  Weight: 64 kg

DRUGS (7)
  1. TETRAZEPAM [Concomitant]
     Active Substance: TETRAZEPAM
     Dosage: UNK
  2. TARGOCID [Suspect]
     Active Substance: TEICOPLANIN
     Indication: ARTHRITIS BACTERIAL
     Dosage: 1 DOSAGE FORM, QD
     Route: 030
     Dates: start: 20120413, end: 20120420
  3. OFLOCET                            /00731801/ [Suspect]
     Active Substance: OFLOXACIN
     Indication: ARTHRITIS BACTERIAL
     Dosage: 1 DOSAGE FORM, QD
     Route: 048
     Dates: start: 20120419, end: 20120424
  4. LOVENOX [Suspect]
     Active Substance: ENOXAPARIN SODIUM
     Indication: THROMBOSIS PROPHYLAXIS
     Dosage: 1 DOSAGE FORM, QD
     Route: 058
     Dates: start: 20120413
  5. ZANIDIP [Concomitant]
     Active Substance: LERCANIDIPINE HYDROCHLORIDE
     Dosage: UNK
  6. CANDESARTAN/HYDROCHLOROTHIAZIDE [Suspect]
     Active Substance: CANDESARTAN CILEXETIL\HYDROCHLOROTHIAZIDE
     Indication: HYPERTENSION
     Dosage: 1 DOSAGE FORM, QD
     Route: 048
  7. DIFFU K [Concomitant]
     Active Substance: POTASSIUM CHLORIDE
     Dosage: UNK

REACTIONS (1)
  - Petechiae [Recovered/Resolved]

NARRATIVE: CASE EVENT DATE: 20120422
